FAERS Safety Report 5616421-5 (Version None)
Quarter: 2008Q1

REPORT INFORMATION
  Report Type: 
  Country: None (occurrence: None)
  Receive Date: 20080207
  Receipt Date: 20080205
  Transmission Date: 20080703
  Serious: Yes (Life-Threatening, Hospitalization)
  Sender: FDA-Public Use
  Company Number: IE-JNJFOC-20080200805

PATIENT
  Age: 66 Year
  Sex: Male

DRUGS (2)
  1. HALDOL [Suspect]
     Indication: PSYCHOTIC DISORDER
     Route: 030
  2. HALDOL [Suspect]
     Indication: DEPRESSION
     Route: 030

REACTIONS (1)
  - CARDIAC ARREST [None]
